FAERS Safety Report 11826077 (Version 2)
Quarter: 2016Q1

REPORT INFORMATION
  Report Type: Spontaneous
  Country: IT (occurrence: IT)
  Receive Date: 20151211
  Receipt Date: 20160225
  Transmission Date: 20160525
  Serious: Yes (Hospitalization, Other)
  Sender: FDA-Public Use
  Company Number: IT-WATSON-2015-27177

PATIENT
  Age: 7 Month
  Sex: Male
  Weight: 3.5 kg

DRUGS (5)
  1. FUROSEMIDE (UNKNOWN) [Suspect]
     Active Substance: FUROSEMIDE
     Indication: CARDIAC FAILURE CONGESTIVE
     Dosage: 2 MG/KG, DAILY
     Route: 048
  2. FUROSEMIDE (UNKNOWN) [Suspect]
     Active Substance: FUROSEMIDE
     Dosage: 1.7 MG/KG, DAILY
     Route: 048
  3. FUROSEMIDE (UNKNOWN) [Suspect]
     Active Substance: FUROSEMIDE
     Dosage: 0.85 MG/KG, DAILY
     Route: 048
  4. ENALAPRIL (UNKNOWN) [Suspect]
     Active Substance: ENALAPRIL
     Indication: CARDIAC FAILURE CONGESTIVE
     Dosage: 1.8 MG/KG, DAILY
     Route: 048
  5. ENALAPRIL (UNKNOWN) [Suspect]
     Active Substance: ENALAPRIL
     Dosage: 1.3 MG/KG, DAILY
     Route: 048

REACTIONS (1)
  - Acute kidney injury [Recovered/Resolved]
